FAERS Safety Report 24382767 (Version 1)
Quarter: 2024Q4

REPORT INFORMATION
  Report Type: Spontaneous
  Country: GB (occurrence: GB)
  Receive Date: 20241001
  Receipt Date: 20241001
  Transmission Date: 20250115
  Serious: Yes (Hospitalization, Other)
  Sender: CHEPLAPHARM
  Company Number: GB-CHEPLA-2024012356

PATIENT
  Age: 66 Year
  Sex: Male
  Weight: 127 kg

DRUGS (15)
  1. CAPECITABINE [Suspect]
     Active Substance: CAPECITABINE
     Indication: Adenocarcinoma of colon
     Dates: start: 20240515, end: 20240814
  2. CAPECITABINE [Suspect]
     Active Substance: CAPECITABINE
     Indication: Gastrointestinal carcinoma
     Dates: start: 20240515, end: 20240814
  3. OXALIPLATIN [Suspect]
     Active Substance: OXALIPLATIN
     Indication: Adenocarcinoma of colon
     Dates: start: 20240515, end: 20240814
  4. OXALIPLATIN [Suspect]
     Active Substance: OXALIPLATIN
     Indication: Gastrointestinal carcinoma
     Dates: start: 20240515, end: 20240814
  5. ASPIRIN [Concomitant]
     Active Substance: ASPIRIN
     Dates: start: 20180114
  6. NITROGLYCERIN [Concomitant]
     Active Substance: NITROGLYCERIN
     Dates: start: 20180114
  7. OMEPRAZOLE [Concomitant]
     Active Substance: OMEPRAZOLE
     Indication: Gastrointestinal disorder prophylaxis
     Dates: start: 20180114
  8. RAMIPRIL [Concomitant]
     Active Substance: RAMIPRIL
     Dates: start: 20180114, end: 20240617
  9. BISOPROLOL [Concomitant]
     Active Substance: BISOPROLOL\BISOPROLOL FUMARATE
     Dates: start: 20220225
  10. IBUPROFEN [Concomitant]
     Active Substance: IBUPROFEN
     Dates: start: 20220308
  11. CHOLECALCIFEROL [Concomitant]
     Active Substance: CHOLECALCIFEROL
  12. ATORVASTATIN [Concomitant]
     Active Substance: ATORVASTATIN
     Dates: start: 20220802
  13. TAMSULOSIN [Concomitant]
     Active Substance: TAMSULOSIN
     Dates: start: 20220805
  14. FOLIC ACID [Concomitant]
     Active Substance: FOLIC ACID
     Dates: start: 20240326, end: 20240724
  15. ACETAMINOPHEN [Concomitant]
     Active Substance: ACETAMINOPHEN
     Dates: start: 20240329

REACTIONS (2)
  - Diarrhoea [Recovered/Resolved]
  - C-reactive protein increased [Unknown]

NARRATIVE: CASE EVENT DATE: 20240524
